FAERS Safety Report 18059335 (Version 1)
Quarter: 2020Q3

REPORT INFORMATION
  Report Type: Spontaneous
  Country: US (occurrence: US)
  Receive Date: 20200723
  Receipt Date: 20200723
  Transmission Date: 20201103
  Serious: No
  Sender: FDA-Public Use
  Company Number: US-ENDO PHARMACEUTICALS INC-2019-108073

PATIENT
  Age: 84 Year
  Sex: Male

DRUGS (2)
  1. EDEX [Suspect]
     Active Substance: ALPROSTADIL
     Indication: ERECTILE DYSFUNCTION
     Dosage: 0.25 ML, UNKNOWN
     Route: 017
     Dates: start: 201909
  2. EDEX [Suspect]
     Active Substance: ALPROSTADIL
     Dosage: 0.5 ML, UNKNOWN
     Route: 017
     Dates: start: 20190817

REACTIONS (2)
  - Incorrect dose administered [Unknown]
  - Therapeutic product effect decreased [Unknown]

NARRATIVE: CASE EVENT DATE: 201909
